FAERS Safety Report 22596594 (Version 1)
Quarter: 2023Q2

REPORT INFORMATION
  Report Type: Spontaneous
  Country: US (occurrence: None)
  Receive Date: 20230613
  Receipt Date: 20230613
  Transmission Date: 20230722
  Serious: Yes (Hospitalization)
  Sender: FDA-Public Use
  Company Number: None

PATIENT
  Sex: Male

DRUGS (1)
  1. ERLEADA [Suspect]
     Active Substance: APALUTAMIDE
     Dosage: FREQUENCY : DAILY;?
     Route: 048

REACTIONS (8)
  - Cerebrovascular accident [None]
  - Hypertension [None]
  - Memory impairment [None]
  - Therapy interrupted [None]
  - Fatigue [None]
  - Fall [None]
  - Balance disorder [None]
  - Hot flush [None]
